FAERS Safety Report 9019917 (Version 1)
Quarter: 2013Q1

REPORT INFORMATION
  Report Type: Spontaneous
  Country: US (occurrence: US)
  Receive Date: 20130118
  Receipt Date: 20130118
  Transmission Date: 20140127
  Serious: Yes (Death)
  Sender: FDA-Public Use
  Company Number: US-JNJFOC-20130106635

PATIENT
  Age: 56 Year
  Sex: Female

DRUGS (11)
  1. CYCLOBENZAPRINE [Suspect]
     Indication: SUICIDE ATTEMPT
     Route: 048
  2. TRICYCLIC ANTIDEPRESSANT UNSPECIFIED [Suspect]
     Indication: SUICIDE ATTEMPT
     Route: 048
  3. CITALOPRAM [Suspect]
     Indication: SUICIDE ATTEMPT
     Route: 048
  4. LISINOPRIL [Suspect]
     Indication: SUICIDE ATTEMPT
     Route: 048
  5. CLONAZEPAM [Suspect]
     Indication: SUICIDE ATTEMPT
     Route: 048
  6. GABAPENTIN [Suspect]
     Indication: SUICIDE ATTEMPT
     Route: 048
  7. ACETAMINOPHEN/BUTALBITAL/CAFFEINE [Suspect]
     Indication: SUICIDE ATTEMPT
     Route: 048
  8. ZOLPIDEM [Suspect]
     Indication: SUICIDE ATTEMPT
     Route: 048
  9. SUMATRIPTAN [Suspect]
     Indication: SUICIDE ATTEMPT
     Route: 048
  10. UNKNOWN MEDICATION [Suspect]
     Indication: SUICIDE ATTEMPT
     Route: 048
  11. NAPROXEN [Suspect]
     Indication: SUICIDE ATTEMPT
     Route: 048

REACTIONS (2)
  - Toxicity to various agents [Fatal]
  - Completed suicide [None]
